FAERS Safety Report 5972772-6 (Version None)
Quarter: 2008Q4

REPORT INFORMATION
  Report Type: 
  Country: None (occurrence: None)
  Receive Date: 20081201
  Receipt Date: 20081125
  Transmission Date: 20090506
  Serious: Yes (Life-Threatening, Hospitalization, Disabling, Other)
  Sender: FDA-Public Use
  Company Number: US-MERCK-0810USA05313

PATIENT
  Age: 38 Year
  Sex: Male
  Weight: 218 kg

DRUGS (9)
  1. JANUVIA [Suspect]
     Indication: TYPE 2 DIABETES MELLITUS
     Route: 048
     Dates: start: 20080802, end: 20080813
  2. METFORMIN [Concomitant]
     Route: 065
  3. GLUCOTROL XL [Concomitant]
     Route: 065
  4. BUMEX [Concomitant]
     Route: 065
  5. NORVASC [Concomitant]
     Route: 065
  6. DIOVAN [Concomitant]
     Route: 065
  7. ADVAIR HFA [Concomitant]
     Route: 065
  8. PRILOSEC [Concomitant]
     Route: 048
  9. ALBUTEROL [Concomitant]
     Route: 065

REACTIONS (6)
  - ANXIETY [None]
  - DYSPNOEA [None]
  - HYPERSENSITIVITY [None]
  - PANIC ATTACK [None]
  - THROAT TIGHTNESS [None]
  - URTICARIA [None]
